FAERS Safety Report 5380104-X (Version None)
Quarter: 2007Q3

REPORT INFORMATION
  Report Type: 
  Country: None (occurrence: None)
  Receive Date: 20070706
  Receipt Date: 20070611
  Transmission Date: 20080115
  Serious: No
  Sender: FDA-Public Use
  Company Number: A0648541A

PATIENT
  Age: 61 Year
  Sex: Female

DRUGS (10)
  1. TYKERB [Suspect]
     Indication: BREAST CANCER
     Dosage: 1200MG PER DAY
     Route: 048
     Dates: start: 20070418
  2. TIAZAC [Concomitant]
  3. DIOVAN [Concomitant]
  4. HYDROCHLOROTHIAZIDE [Concomitant]
  5. BENAZAPRIL [Concomitant]
  6. CATAPRES [Concomitant]
  7. METFORMIN HCL [Concomitant]
  8. POTASSIUM ACETATE [Concomitant]
  9. PRILOSEC [Concomitant]
  10. LEXAPRO [Concomitant]

REACTIONS (3)
  - DIARRHOEA [None]
  - HEART RATE INCREASED [None]
  - NAUSEA [None]
